FAERS Safety Report 20494562 (Version 1)
Quarter: 2022Q1

REPORT INFORMATION
  Report Type: Other
  Country: US (occurrence: None)
  Receive Date: 20220221
  Receipt Date: 20220221
  Transmission Date: 20220423
  Serious: Yes (Other)
  Sender: FDA-Public Use
  Company Number: US-ROCHE-3023188

PATIENT
  Age: 68 Year
  Sex: Female
  Weight: 70.370 kg

DRUGS (2)
  1. OCREVUS [Suspect]
     Active Substance: OCRELIZUMAB
     Indication: Primary progressive multiple sclerosis
     Dosage: YES
     Route: 042
     Dates: start: 2017
  2. OCREVUS [Suspect]
     Active Substance: OCRELIZUMAB
     Route: 042

REACTIONS (4)
  - COVID-19 [Recovering/Resolving]
  - Fatigue [Not Recovered/Not Resolved]
  - Fall [Unknown]
  - Multiple sclerosis [Unknown]

NARRATIVE: CASE EVENT DATE: 20210710
